FAERS Safety Report 5257018-9 (Version None)
Quarter: 2007Q1

REPORT INFORMATION
  Report Type: 
  Country: None (occurrence: None)
  Receive Date: 20070307
  Receipt Date: 20070228
  Transmission Date: 20070707
  Serious: Yes (Life-Threatening, Other)
  Sender: FDA-Public Use
  Company Number: 2007AC00050

PATIENT
  Age: 5812 Day
  Sex: Female

DRUGS (3)
  1. SEROQUEL [Suspect]
     Indication: PSYCHOTIC DISORDER
     Route: 048
     Dates: start: 20060115, end: 20060115
  2. LORAZEPAM [Concomitant]
  3. CITALOPRAM HYDROBROMIDE [Concomitant]

REACTIONS (9)
  - AGITATION [None]
  - CONVULSION [None]
  - GLASGOW COMA SCALE ABNORMAL [None]
  - HYPOTENSION [None]
  - INTENTIONAL OVERDOSE [None]
  - PUPIL FIXED [None]
  - SINUS TACHYCARDIA [None]
  - STUPOR [None]
  - VOMITING [None]
